FAERS Safety Report 7168139-8 (Version None)
Quarter: 2010Q4

REPORT INFORMATION
  Report Type: 
  Country: None (occurrence: None)
  Receive Date: 20101216
  Receipt Date: 20101208
  Transmission Date: 20110411
  Serious: Yes (Other)
  Sender: FDA-Public Use
  Company Number: US-BAYER-2010-003996

PATIENT
  Sex: Female

DRUGS (2)
  1. MAGNEVIST [Suspect]
     Indication: NUCLEAR MAGNETIC RESONANCE IMAGING BRAIN
     Dosage: 10 ML, ONCE
     Dates: start: 20101206, end: 20101206
  2. MAGNEVIST [Suspect]
     Indication: HEADACHE

REACTIONS (3)
  - DYSPNOEA [None]
  - RASH [None]
  - URTICARIA [None]
